FAERS Safety Report 21634712 (Version 2)
Quarter: 2022Q4

REPORT INFORMATION
  Report Type: Report from Study
  Country: JP (occurrence: JP)
  Receive Date: 20221123
  Receipt Date: 20221216
  Transmission Date: 20230113
  Serious: Yes (Hospitalization)
  Sender: FDA-Public Use
  Company Number: JP-ferring-EVA202201383FERRINGPH

PATIENT

DRUGS (9)
  1. DESMOPRESSIN [Suspect]
     Active Substance: DESMOPRESSIN
     Indication: Nocturia
     Dosage: 25 UG
     Route: 065
     Dates: start: 20220325
  2. DESMOPRESSIN [Suspect]
     Active Substance: DESMOPRESSIN
     Dosage: 25 UG
     Route: 065
     Dates: start: 20201127, end: 20211123
  3. SILODOSIN [Concomitant]
     Active Substance: SILODOSIN
     Indication: Nocturia
     Dosage: 8 MG
     Route: 048
  4. DUTASTERIDE [Concomitant]
     Active Substance: DUTASTERIDE
     Indication: Nocturia
     Dosage: 0.5 MG
     Route: 048
  5. ZOPICLONE [Concomitant]
     Active Substance: ZOPICLONE
     Indication: Nocturia
     Dosage: 7.5 MG
     Route: 048
  6. CARVEDILOL [Concomitant]
     Active Substance: CARVEDILOL
     Indication: Atrial fibrillation
     Dosage: 2.5 MG
     Route: 048
  7. DABIGATRAN ETEXILATE MESYLATE [Concomitant]
     Active Substance: DABIGATRAN ETEXILATE MESYLATE
     Indication: Atrial fibrillation
     Dosage: 220 MG
     Route: 048
  8. FAMOTIDINE [Concomitant]
     Active Substance: FAMOTIDINE
     Indication: Chronic gastritis
     Dosage: 40 MG
     Route: 048
  9. ROZEREM [Concomitant]
     Active Substance: RAMELTEON
     Indication: Insomnia
     Dosage: 8 MG
     Route: 048

REACTIONS (7)
  - Hyponatraemia [Recovered/Resolved]
  - Urinary retention [Recovering/Resolving]
  - Restlessness [Recovering/Resolving]
  - Disorientation [Recovering/Resolving]
  - Therapy interrupted [Recovered/Resolved]
  - Contraindicated product prescribed [Not Recovered/Not Resolved]
  - Off label use [Not Recovered/Not Resolved]

NARRATIVE: CASE EVENT DATE: 20210101
